FAERS Safety Report 16777795 (Version 3)
Quarter: 2019Q4

REPORT INFORMATION
  Report Type: Report from Study
  Country: US (occurrence: US)
  Receive Date: 20190905
  Receipt Date: 20191009
  Transmission Date: 20200122
  Serious: Yes (Hospitalization)
  Sender: FDA-Public Use
  Company Number: US-EMD SERONO-9102301

PATIENT
  Age: 74 Year
  Sex: Female

DRUGS (2)
  1. MAVENCLAD [Suspect]
     Active Substance: CLADRIBINE
     Indication: MULTIPLE SCLEROSIS
     Dosage: FIRST WEEK THERAPY: ONE TABLET DAILY FOR 5 DAYS
     Route: 048
     Dates: start: 20190618
  2. MAVENCLAD [Suspect]
     Active Substance: CLADRIBINE
     Dosage: IN SECOND WEEK THERAPY, THE PATIENT WAS PRESCRIBED TO TAKE 10 MG ONCE A DAY FOR 5 DAYS, BUT THE PATI
     Route: 048
     Dates: start: 20190723, end: 20190725

REACTIONS (9)
  - Hypertension [Unknown]
  - Product administration error [Unknown]
  - Arthralgia [Unknown]
  - Diarrhoea [Unknown]
  - Fall [Not Recovered/Not Resolved]
  - Pain [Not Recovered/Not Resolved]
  - Muscular weakness [Unknown]
  - Contusion [Unknown]
  - Urinary tract infection [Unknown]

NARRATIVE: CASE EVENT DATE: 201906
